FAERS Safety Report 5749690-1 (Version None)
Quarter: 2008Q2

REPORT INFORMATION
  Report Type: 
  Country: None (occurrence: None)
  Receive Date: 20080521
  Receipt Date: 20080521
  Transmission Date: 20081010
  Serious: Yes (Hospitalization, Disabling)
  Sender: FDA-Public Use
  Company Number: None

PATIENT
  Age: 28 Year
  Sex: Male

DRUGS (1)
  1. CISPLATIN [Suspect]
     Indication: RENAL FAILURE ACUTE
     Dosage: 100 MG/M Q 21 DAY PO
     Route: 048
     Dates: start: 20070131

REACTIONS (2)
  - DISEASE PROGRESSION [None]
  - RENAL FAILURE ACUTE [None]
